FAERS Safety Report 8486194-X (Version None)
Quarter: 2012Q3

REPORT INFORMATION
  Report Type: 
  Country: None (occurrence: None)
  Receive Date: 20120703
  Receipt Date: 20120702
  Transmission Date: 20120928
  Serious: No
  Sender: FDA-Public Use
  Company Number: US-BAYER-2012-065660

PATIENT
  Age: 49 Year
  Sex: Female

DRUGS (12)
  1. BETASERON [Suspect]
     Dosage: 0.5 ML, QOD
     Route: 058
  2. BETASERON [Suspect]
     Dosage: 1 ML, QOD
     Route: 058
  3. PROMETHAZINE [Concomitant]
     Dosage: 12.5 MG, UNK
  4. CLONAZEPAM [Concomitant]
     Dosage: 0.5 MG, UNK
  5. GABAPENTIN [Concomitant]
     Dosage: 100 MG, UNK
  6. OXYBUTYNIN [Concomitant]
     Dosage: 5 MG, UNK
  7. IBUPROFEN (ADVIL) [Concomitant]
     Dosage: 200 MG, UNK
  8. CALCIUM +VIT D [Concomitant]
  9. BETASERON [Suspect]
     Dosage: 0.75 ML, QOD
     Route: 058
  10. BETASERON [Suspect]
     Dosage: 0.25 ML, QOD
     Route: 058
  11. CITALOPRAM HYDROBROMIDE [Concomitant]
     Dosage: 20 MG, UNK
  12. MULTI-VITAMIN [Concomitant]

REACTIONS (3)
  - NAUSEA [None]
  - SWELLING [None]
  - PYREXIA [None]
